FAERS Safety Report 10040025 (Version 2)
Quarter: 2014Q1

REPORT INFORMATION
  Report Type: Spontaneous
  Country: US (occurrence: US)
  Receive Date: 20140326
  Receipt Date: 20140326
  Transmission Date: 20141002
  Serious: No
  Sender: FDA-Public Use
  Company Number: US-LUNDBECK-DKLU1096490

PATIENT
  Sex: Female
  Weight: 83 kg

DRUGS (3)
  1. SABRIL (TABLET) [Suspect]
     Indication: TEMPORAL LOBE EPILEPSY
     Route: 048
     Dates: start: 20131121, end: 20140107
  2. SABRIL (TABLET) [Suspect]
     Indication: EPILEPSY
  3. FIORICET [Concomitant]
     Indication: PRODUCT USED FOR UNKNOWN INDICATION
     Dates: start: 1999

REACTIONS (2)
  - Headache [Unknown]
  - Drug ineffective [Unknown]
